FAERS Safety Report 5355596-2 (Version None)
Quarter: 2007Q2

REPORT INFORMATION
  Report Type: 
  Country: None (occurrence: None)
  Receive Date: 20070613
  Receipt Date: 20070605
  Transmission Date: 20071010
  Serious: Yes (Death)
  Sender: FDA-Public Use
  Company Number: A0654900A

PATIENT
  Age: 22 Year
  Sex: Male

DRUGS (1)
  1. WELLBUTRIN [Suspect]

REACTIONS (1)
  - COMPLETED SUICIDE [None]
